FAERS Safety Report 20965154 (Version 1)
Quarter: 2022Q2

REPORT INFORMATION
  Report Type: Spontaneous
  Country: JP (occurrence: JP)
  Receive Date: 20220616
  Receipt Date: 20220616
  Transmission Date: 20220721
  Serious: Yes (Other)
  Sender: FDA-Public Use
  Company Number: JP-NOVARTISPH-NVSJ2022JP092304

PATIENT
  Sex: Female

DRUGS (2)
  1. METFORMIN HYDROCHLORIDE\VILDAGLIPTIN [Suspect]
     Active Substance: METFORMIN HYDROCHLORIDE\VILDAGLIPTIN
     Indication: Type 2 diabetes mellitus
     Dosage: 1DF:VILDAGLIPTIN 50MG,METFORMIN HYDROCHLORIDE 250MG, QD, AT NIGHT
     Route: 048
  2. METFORMIN HYDROCHLORIDE\VILDAGLIPTIN [Suspect]
     Active Substance: METFORMIN HYDROCHLORIDE\VILDAGLIPTIN
     Dosage: 1DF:VILDAGLIPTIN 50MG ?METFORMIN HYDROCHLORIDE 500MG, BID
     Route: 048

REACTIONS (3)
  - Diabetes mellitus inadequate control [Unknown]
  - Underdose [Unknown]
  - Inappropriate schedule of product administration [Unknown]
